FAERS Safety Report 18704373 (Version 1)
Quarter: 2021Q1

REPORT INFORMATION
  Report Type: Spontaneous
  Country: ES (occurrence: ES)
  Receive Date: 20210106
  Receipt Date: 20210106
  Transmission Date: 20210419
  Serious: Yes (Life-Threatening, Hospitalization)
  Sender: FDA-Public Use
  Company Number: ES-SUN PHARMACEUTICAL INDUSTRIES LTD-2020RR-274203

PATIENT
  Age: 59 Year
  Sex: Female

DRUGS (4)
  1. VENLAFAXINE [Suspect]
     Active Substance: VENLAFAXINE HYDROCHLORIDE
     Indication: PRODUCT USED FOR UNKNOWN INDICATION
     Dosage: 1350 MILLIGRAM, 1 TABLET AT BREAKFAST, 1 TABLET AT DINNER; IN TOTAL
     Route: 048
     Dates: start: 20201120, end: 20201120
  2. BROMAZEPAM 1,5 MG CAPSULAS EFG, 30 CAPSULAS [Interacting]
     Active Substance: BROMAZEPAM
     Indication: PRODUCT USED FOR UNKNOWN INDICATION
     Dosage: 31.5 MILLIGRAM, 1 TABLET FOR DINNER; IN TOTAL
     Route: 048
     Dates: start: 20201120, end: 20201120
  3. LORAZEPAM 1 MG COMPRIMIDOS EFG, 25 COMPRIMIDOS [Interacting]
     Active Substance: LORAZEPAM
     Indication: PRODUCT USED FOR UNKNOWN INDICATION
     Dosage: 6 MILLIGRAM, IN TOTAL
     Route: 048
     Dates: start: 20201120, end: 20201120
  4. PERMIXON 160 MG CAPSULAS DURAS, 60 CAPSULAS [Interacting]
     Active Substance: HERBALS\SAW PALMETTO
     Indication: PRODUCT USED FOR UNKNOWN INDICATION
     Dosage: 1760 MILLIGRAM, 11 PERMIXON TABLETS; IN TOTAL
     Route: 048
     Dates: start: 20201120, end: 20201120

REACTIONS (3)
  - Tonic convulsion [Recovered/Resolved]
  - Coma [Recovered/Resolved]
  - Suicide attempt [Unknown]

NARRATIVE: CASE EVENT DATE: 20201120
